FAERS Safety Report 4863771-6 (Version None)
Quarter: 2005Q4

REPORT INFORMATION
  Report Type: 
  Country: None (occurrence: None)
  Receive Date: 20051222
  Receipt Date: 20050812
  Transmission Date: 20060501
  Serious: No
  Sender: FDA-Public Use
  Company Number: US-GLAXOSMITHKLINE-A0570062A

PATIENT
  Age: 66 Year
  Sex: Male

DRUGS (5)
  1. FLONASE [Suspect]
     Dosage: 2SPR ALTERNATE DAYS
     Route: 045
     Dates: start: 19980101
  2. BENTYL [Concomitant]
  3. LIBRAX [Concomitant]
  4. FLEXERIL [Concomitant]
  5. ASPIRIN [Concomitant]

REACTIONS (2)
  - BONE DENSITY DECREASED [None]
  - NASAL DRYNESS [None]
